FAERS Safety Report 5151260-3 (Version None)
Quarter: 2006Q4

REPORT INFORMATION
  Report Type: 
  Country: None (occurrence: None)
  Receive Date: 20061114
  Receipt Date: 20061114
  Transmission Date: 20070319
  Serious: Yes (Hospitalization)
  Sender: FDA-Public Use
  Company Number: None

PATIENT
  Age: 19 Year
  Sex: Male
  Weight: 97.5234 kg

DRUGS (2)
  1. ACETAMINOPHEN [Suspect]
     Indication: HEADACHE
     Dosage: 2 TABLETS    EVERY 4 HOURS   PO
     Route: 048
     Dates: start: 20060901, end: 20061107
  2. ACETAMINOPHEN [Suspect]
     Indication: TOOTHACHE
     Dosage: 2 TABLETS    EVERY 4 HOURS   PO
     Route: 048
     Dates: start: 20060901, end: 20061107

REACTIONS (4)
  - ABDOMINAL PAIN [None]
  - ABDOMINAL PAIN UPPER [None]
  - HAEMATOCHEZIA [None]
  - PHARMACEUTICAL PRODUCT COMPLAINT [None]
